FAERS Safety Report 9596306 (Version 2)
Quarter: 2014Q3

REPORT INFORMATION
  Report Type: Spontaneous
  Country: US (occurrence: US)
  Receive Date: 20131004
  Receipt Date: 20140821
  Transmission Date: 20150326
  Serious: Yes (Hospitalization, Other)
  Sender: FDA-Public Use
  Company Number: US-009507513-1310USA001927

PATIENT
  Sex: Female
  Weight: 70.75 kg

DRUGS (1)
  1. NUVARING [Suspect]
     Active Substance: ETHINYL ESTRADIOL\ETONOGESTREL
     Indication: CONTRACEPTION
     Dosage: UNK
     Route: 067
     Dates: start: 20090318, end: 201010

REACTIONS (8)
  - Cholecystectomy [Unknown]
  - Depression [Unknown]
  - Breast mass [Unknown]
  - Endometriosis [Unknown]
  - Torticollis [Unknown]
  - Hypothyroidism [Unknown]
  - Pulmonary embolism [Unknown]
  - Urinary tract infection [Recovered/Resolved]

NARRATIVE: CASE EVENT DATE: 20101008
